FAERS Safety Report 7766838-8 (Version None)
Quarter: 2011Q3

REPORT INFORMATION
  Report Type: 
  Country: None (occurrence: None)
  Receive Date: 20110922
  Receipt Date: 20101129
  Transmission Date: 20111222
  Serious: No
  Sender: FDA-Public Use
  Company Number: US-ASTRAZENECA-2010SE56822

PATIENT
  Sex: Female

DRUGS (4)
  1. SEROQUEL [Suspect]
     Indication: ANXIETY
     Route: 048
  2. SEROQUEL [Suspect]
     Route: 048
  3. SEROQUEL [Suspect]
     Indication: DEPRESSION
     Route: 048
  4. SEROQUEL [Suspect]
     Route: 048

REACTIONS (5)
  - TREATMENT NONCOMPLIANCE [None]
  - PANIC ATTACK [None]
  - GENERAL PHYSICAL HEALTH DETERIORATION [None]
  - FORMICATION [None]
  - ABDOMINAL DISTENSION [None]
